FAERS Safety Report 4836273-0 (Version None)
Quarter: 2005Q4

REPORT INFORMATION
  Report Type: 
  Country: None (occurrence: None)
  Receive Date: 20051123
  Receipt Date: 20051111
  Transmission Date: 20060501
  Serious: Yes (Hospitalization)
  Sender: FDA-Public Use
  Company Number: US-JNJFOC-20051104081

PATIENT
  Sex: Male
  Weight: 31.3 kg

DRUGS (1)
  1. CONCERTA [Suspect]
     Indication: ATTENTION DEFICIT/HYPERACTIVITY DISORDER
     Route: 048
     Dates: start: 20040801, end: 20051014

REACTIONS (3)
  - HALLUCINATION [None]
  - HOMICIDAL IDEATION [None]
  - SUICIDAL IDEATION [None]
